FAERS Safety Report 5416327-0 (Version None)
Quarter: 2007Q3

REPORT INFORMATION
  Report Type: 
  Country: None (occurrence: None)
  Receive Date: 20070718
  Receipt Date: 20060609
  Transmission Date: 20080115
  Serious: Yes (Hospitalization, Other)
  Sender: FDA-Public Use
  Company Number: 2006044886

PATIENT
  Age: 43 Year
  Sex: Female
  Weight: 83.4619 kg

DRUGS (2)
  1. CELEBREX [Suspect]
     Indication: PAIN IN EXTREMITY
     Dosage: 200 MG (100 MG, 2 IN 1 D)
     Dates: start: 20010801
  2. BEXTRA [Suspect]
     Indication: PAIN IN EXTREMITY
     Dates: start: 20030501

REACTIONS (2)
  - DEEP VEIN THROMBOSIS [None]
  - GASTROINTESTINAL HAEMORRHAGE [None]
